FAERS Safety Report 22161780 (Version 2)
Quarter: 2024Q1

REPORT INFORMATION
  Report Type: Report from Study
  Country: US (occurrence: US)
  Receive Date: 20230331
  Receipt Date: 20240221
  Transmission Date: 20240410
  Serious: Yes (Other)
  Sender: FDA-Public Use
  Company Number: US-TAKEDA-2022TUS014941

PATIENT
  Sex: Male

DRUGS (2)
  1. PONATINIB [Suspect]
     Active Substance: PONATINIB
     Indication: Acute lymphocytic leukaemia
     Dosage: 15 MILLIGRAM, BID
     Route: 065
  2. PONATINIB [Suspect]
     Active Substance: PONATINIB
     Dosage: 30 MILLIGRAM, QD
     Route: 048

REACTIONS (3)
  - Thrombocytopenia [Unknown]
  - COVID-19 [Recovered/Resolved]
  - Product dose omission issue [Unknown]
